FAERS Safety Report 15648425 (Version 2)
Quarter: 2018Q4

REPORT INFORMATION
  Report Type: Spontaneous
  Country: US (occurrence: US)
  Receive Date: 20181122
  Receipt Date: 20181130
  Transmission Date: 20190205
  Serious: No
  Sender: FDA-Public Use
  Company Number: US-PFIZER INC-2018480407

PATIENT
  Age: 54 Year
  Sex: Female
  Weight: 129.73 kg

DRUGS (1)
  1. LYRICA [Suspect]
     Active Substance: PREGABALIN
     Indication: NEUROPATHY PERIPHERAL
     Dosage: 300 MG, 2X/DAY (150MG CAPSULE IN THE MORNING, AND ONE 450MG CAPSULE AT NIGHT)
     Route: 048
     Dates: start: 201510

REACTIONS (1)
  - Insomnia [Unknown]
